FAERS Safety Report 9747672 (Version 1)
Quarter: 2013Q4

REPORT INFORMATION
  Report Type: Spontaneous
  Country: US (occurrence: None)
  Receive Date: 20131205
  Receipt Date: 20131205
  Transmission Date: 20140711
  Serious: Yes (Death, Life-Threatening, Hospitalization)
  Sender: FDA-Public Use
  Company Number: DAV-AE-LOR-13-10

PATIENT
  Age: 46 Year
  Sex: Male

DRUGS (3)
  1. LORAZEPAM [Suspect]
     Indication: EPILEPSY
     Route: 040
  2. PENTOBARBITAL [Concomitant]
  3. PHENOBARBITAL [Concomitant]

REACTIONS (8)
  - Toxicity to various agents [None]
  - Sepsis [None]
  - Lactic acidosis [None]
  - Renal failure acute [None]
  - Renal failure [None]
  - Hepatic failure [None]
  - Shock [None]
  - Drug level increased [None]
